FAERS Safety Report 6273068-8 (Version None)
Quarter: 2009Q3

REPORT INFORMATION
  Report Type: 
  Country: None (occurrence: None)
  Receive Date: 20090715
  Receipt Date: 20090715
  Transmission Date: 20100115
  Serious: Yes (Hospitalization)
  Sender: FDA-Public Use
  Company Number: None

PATIENT
  Sex: Female
  Weight: 80.74 kg

DRUGS (3)
  1. FLUOROURACIL [Suspect]
     Dosage: 1038 MG
  2. CYCLOPHOSPHAMIDE [Suspect]
     Dosage: 1038 MG
  3. METHOTREXATE [Suspect]
     Dosage: 69 MG

REACTIONS (4)
  - CARDIAC FAILURE CONGESTIVE [None]
  - DIASTOLIC DYSFUNCTION [None]
  - SYNCOPE [None]
  - TREATMENT NONCOMPLIANCE [None]
